FAERS Safety Report 9817704 (Version 1)
Quarter: 2014Q1

REPORT INFORMATION
  Report Type: Report from Study
  Country: US (occurrence: US)
  Receive Date: 20140115
  Receipt Date: 20140115
  Transmission Date: 20141002
  Serious: Yes (Hospitalization)
  Sender: FDA-Public Use
  Company Number: US-ROCHE-1329943

PATIENT
  Sex: Female

DRUGS (10)
  1. XOLAIR [Suspect]
     Indication: ASTHMA
     Route: 058
     Dates: start: 2008
  2. NAPROXEN [Suspect]
     Indication: MENSTRUAL DISORDER
     Dosage: 1 TABLET BY ORAL ROUTE TWICE DAILY WITH FOOD
     Route: 048
  3. OXYCODONE [Concomitant]
     Dosage: 1 TABLET ORAL EVERY 6 HOURS
     Route: 048
  4. PROAIR (UNITED STATES) [Concomitant]
     Dosage: INHALE 2 PUFFS EVERY 4-6 AS NEEDED AS REQUIRED
     Route: 065
  5. SINGULAIR [Concomitant]
     Dosage: 1 TABLET ORAL PER DAY
     Route: 048
  6. FLONASE [Concomitant]
     Dosage: 2 SPRAYS BY NASAL ROUTE 1  PER DAY
     Route: 045
  7. ZYRTEC [Concomitant]
     Dosage: 1 TABLET ORAL ONE TIME DAILY
     Route: 048
  8. ADVAIR DISKUS [Concomitant]
     Dosage: 1 PUFF TWO TIMES/DAY IN THE MORNING AND EVENING
     Route: 065
  9. CODEINE/GUAIFENESIN [Concomitant]
     Dosage: EVERY 4 HOURS
     Route: 048
  10. ALBUTEROL [Concomitant]
     Dosage: INHALE 3ML BY NEBULIZATION 4 X DAY PRN
     Route: 065

REACTIONS (12)
  - Skin reaction [Unknown]
  - Upper-airway cough syndrome [Unknown]
  - Nasal obstruction [Unknown]
  - Sneezing [Unknown]
  - Dyspnoea [Unknown]
  - Cough [Unknown]
  - Pain [Unknown]
  - Bronchiectasis [Unknown]
  - Periodic limb movement disorder [Unknown]
  - Asthma [Unknown]
  - Sleep apnoea syndrome [Unknown]
  - Nasal congestion [Unknown]
